FAERS Safety Report 7731624-1 (Version None)
Quarter: 2011Q3

REPORT INFORMATION
  Report Type: 
  Country: None (occurrence: None)
  Receive Date: 20110906
  Receipt Date: 20110601
  Transmission Date: 20111222
  Serious: No
  Sender: FDA-Public Use
  Company Number: US-AMGEN-USASP2011028462

PATIENT
  Age: 62 Year
  Sex: Female

DRUGS (4)
  1. FUROSEMIDE [Concomitant]
  2. DIURETICS [Concomitant]
  3. PROLIA [Suspect]
     Indication: OSTEOPOROSIS
     Dates: start: 20110524
  4. SPIRONOLACTONE [Concomitant]

REACTIONS (2)
  - OEDEMA PERIPHERAL [None]
  - BACK PAIN [None]
